FAERS Safety Report 20211720 (Version 1)
Quarter: 2021Q4

REPORT INFORMATION
  Report Type: Spontaneous
  Country: US (occurrence: None)
  Receive Date: 20211220
  Receipt Date: 20211220
  Transmission Date: 20220304
  Serious: Yes (Life-Threatening, Hospitalization, Disabling, Other)
  Sender: FDA-Public Use
  Company Number: None

PATIENT
  Age: 32 Year

DRUGS (1)
  1. BUPRENORPHINE AND NALOXONE NOS [Suspect]
     Active Substance: BUPRENORPHINE HYDROCHLORIDE\NALOXONE HYDROCHLORIDE OR BUPRENORPHINE\NALOXONE

REACTIONS (8)
  - Hair growth abnormal [None]
  - Haemorrhage [None]
  - Pain [None]
  - Alopecia [None]
  - Agitation [None]
  - Discomfort [None]
  - Eye haemorrhage [None]
  - Blindness [None]

NARRATIVE: CASE EVENT DATE: 20211220
